FAERS Safety Report 8606875 (Version 3)
Quarter: 2012Q4

REPORT INFORMATION
  Report Type: 
  Country: FR (occurrence: FR)
  Receive Date: 20120611
  Receipt Date: 20121211
  Transmission Date: 20130627
  Serious: Yes (Hospitalization)
  Sender: FDA-Public Use
  Company Number: FR-BIOGENIDEC-2012BI012502

PATIENT
  Age: 45 Year
  Sex: Male
  Weight: 70 kg

DRUGS (6)
  1. AVONEX [Suspect]
     Indication: MULTIPLE SCLEROSIS
     Route: 030
     Dates: start: 20021015, end: 200310
  2. AVONEX [Suspect]
     Indication: MULTIPLE SCLEROSIS
     Route: 030
     Dates: start: 200310, end: 20071215
  3. AVONEX [Suspect]
     Indication: MULTIPLE SCLEROSIS
     Route: 030
     Dates: start: 20110622, end: 20120103
  4. SEROPRAM [Concomitant]
     Indication: DEPRESSION
  5. VENLAFAXINE [Concomitant]
     Indication: DEPRESSION
     Dates: start: 2011
  6. ATARAX [Concomitant]
     Indication: DEPRESSION
     Dates: start: 2011, end: 20120115

REACTIONS (1)
  - Hallucination [Recovered/Resolved with Sequelae]
